FAERS Safety Report 7204162-2 (Version None)
Quarter: 2010Q4

REPORT INFORMATION
  Report Type: 
  Country: None (occurrence: None)
  Receive Date: 20101230
  Receipt Date: 20101222
  Transmission Date: 20110411
  Serious: Yes (Other)
  Sender: FDA-Public Use
  Company Number: GB-TEVA-252274ISR

PATIENT
  Age: 70 Year
  Sex: Male
  Weight: 92 kg

DRUGS (3)
  1. ROPINIROLE [Suspect]
     Indication: PARKINSON'S DISEASE
  2. CARBIDOPA, LEVODOPA AND ENTACAPONE [Interacting]
     Indication: PARKINSON'S DISEASE
  3. SILDENAFIL [Interacting]
     Indication: ERECTILE DYSFUNCTION
     Route: 048

REACTIONS (2)
  - DRUG INTERACTION [None]
  - PARKINSON'S DISEASE [None]
